FAERS Safety Report 12462595 (Version 1)
Quarter: 2016Q2

REPORT INFORMATION
  Report Type: Spontaneous
  Country: IN (occurrence: IN)
  Receive Date: 20160614
  Receipt Date: 20160614
  Transmission Date: 20160815
  Serious: No
  Sender: FDA-Public Use
  Company Number: IN-LUPIN PHARMACEUTICALS INC.-E2B_00004990

PATIENT
  Sex: Male

DRUGS (1)
  1. DEFENAC GEL 1% [Suspect]
     Active Substance: DICLOFENAC DIETHYLAMINE
     Indication: JOINT SWELLING
     Route: 061
     Dates: start: 20160221

REACTIONS (3)
  - Drug ineffective [Unknown]
  - Pain [Not Recovered/Not Resolved]
  - Swelling [Not Recovered/Not Resolved]
